FAERS Safety Report 7828116-8 (Version None)
Quarter: 2011Q4

REPORT INFORMATION
  Report Type: 
  Country: None (occurrence: None)
  Receive Date: 20111020
  Receipt Date: 20111019
  Transmission Date: 20120403
  Serious: Yes (Other)
  Sender: FDA-Public Use
  Company Number: IT-SANOFI-AVENTIS-2011SA068554

PATIENT
  Age: 86 Year
  Sex: Male

DRUGS (9)
  1. SOLOSA [Concomitant]
     Route: 065
  2. PANTOPRAZOLE [Concomitant]
     Route: 065
  3. SEACOR [Concomitant]
     Route: 048
  4. NEBIVOLOL HCL [Suspect]
     Route: 048
     Dates: start: 20100810, end: 20110809
  5. ASPIRIN [Concomitant]
     Route: 065
  6. LASIX [Suspect]
     Route: 048
     Dates: start: 20100810, end: 20110809
  7. LUVION [Suspect]
     Route: 048
     Dates: start: 20100810, end: 20110809
  8. METFORAL [Concomitant]
     Route: 048
  9. ROSUVASTATIN CALCIUM [Concomitant]
     Route: 065

REACTIONS (1)
  - PRESYNCOPE [None]
